FAERS Safety Report 4504390-0 (Version None)
Quarter: 2004Q4

REPORT INFORMATION
  Report Type: 
  Country: None (occurrence: None)
  Receive Date: 20041118
  Receipt Date: 20040916
  Transmission Date: 20050328
  Serious: Yes (Life-Threatening)
  Sender: FDA-Public Use
  Company Number: US-ROCHE-380879

PATIENT
  Age: 56 Year
  Sex: Female
  Weight: 85.2 kg

DRUGS (2)
  1. PEGASYS [Suspect]
     Route: 065
     Dates: start: 20040215, end: 20040915
  2. COPEGUS [Concomitant]
     Indication: HEPATITIS C
     Route: 048
     Dates: start: 20040215, end: 20040915

REACTIONS (1)
  - SQUAMOUS CELL CARCINOMA [None]
